FAERS Safety Report 10089405 (Version 3)
Quarter: 2014Q2

REPORT INFORMATION
  Report Type: Spontaneous
  Country: JP (occurrence: JP)
  Receive Date: 20140421
  Receipt Date: 20140522
  Transmission Date: 20141212
  Serious: Yes (Hospitalization)
  Sender: FDA-Public Use
  Company Number: JP-B.I. PHARMACEUTICALS,INC./RIDGEFIELD-2014-BI-17575GD

PATIENT
  Age: 67 Year
  Sex: Male

DRUGS (1)
  1. PRADAXA [Suspect]
     Indication: DEEP VEIN THROMBOSIS
     Route: 048

REACTIONS (4)
  - Vena cava thrombosis [Not Recovered/Not Resolved]
  - Loss of consciousness [Not Recovered/Not Resolved]
  - Off label use [Unknown]
  - Drug effect incomplete [Unknown]
